FAERS Safety Report 8769123 (Version 2)
Quarter: 2012Q4

REPORT INFORMATION
  Report Type: 
  Country: US (occurrence: US)
  Receive Date: 20120904
  Receipt Date: 20120907
  Transmission Date: 20130627
  Serious: Yes (Other)
  Sender: FDA-Public Use
  Company Number: US-ELI_LILLY_AND_COMPANY-US201208007696

PATIENT
  Sex: Male

DRUGS (1)
  1. HUMATROPE [Suspect]
     Indication: GROWTH HORMONE DEFICIENCY
     Dosage: 1.0 mg, qd
     Dates: start: 20111225

REACTIONS (5)
  - Pulmonary embolism [Unknown]
  - Thrombosis [Not Recovered/Not Resolved]
  - Injury [Unknown]
  - Arthritis [Unknown]
  - Lyme disease [Unknown]
